FAERS Safety Report 7272778-3 (Version None)
Quarter: 2010Q4

REPORT INFORMATION
  Report Type: 
  Country: None (occurrence: None)
  Receive Date: 20101208
  Receipt Date: 20100707
  Transmission Date: 20110411
  Serious: Yes (Hospitalization)
  Sender: FDA-Public Use
  Company Number: 1000014946

PATIENT
  Age: 83 Year
  Sex: Female

DRUGS (7)
  1. NAMENDA [Suspect]
     Indication: DEMENTIA ALZHEIMER'S TYPE
     Dosage: 10 MG ( 10 MG, 1 IN 1 D), ORAL
     Route: 048
     Dates: start: 20070101, end: 20100501
  2. ARICEPT [Suspect]
     Indication: DEMENTIA ALZHEIMER'S TYPE
  3. WELCHOL [Suspect]
     Indication: BLOOD CHOLESTEROL INCREASED
  4. COZAAR [Suspect]
     Indication: HYPERTENSION
  5. JANUVIA [Concomitant]
  6. LANTUS [Concomitant]
  7. LEVOTHYROXINE [Concomitant]

REACTIONS (1)
  - SYNCOPE [None]
